FAERS Safety Report 8022305-8 (Version None)
Quarter: 2012Q1

REPORT INFORMATION
  Report Type: 
  Country: None (occurrence: None)
  Receive Date: 20120104
  Receipt Date: 20111230
  Transmission Date: 20120608
  Serious: Yes (Life-Threatening, Hospitalization)
  Sender: FDA-Public Use
  Company Number: PHHY2011CN113186

PATIENT
  Age: 50 Year
  Sex: Male

DRUGS (2)
  1. ZOLEDRONOC ACID [Suspect]
     Indication: OSTEOPOROSIS
     Dosage: 5 MG, UNK
     Route: 042
  2. CELEBREX [Concomitant]
     Indication: PYREXIA
     Dosage: UNK UKN, UNK

REACTIONS (6)
  - GASTRIC ULCER [None]
  - RESPIRATORY FAILURE [None]
  - FAECES DISCOLOURED [None]
  - PYREXIA [None]
  - LUNG INFECTION [None]
  - ANAEMIA [None]
